FAERS Safety Report 4430539-4 (Version None)
Quarter: 2004Q3

REPORT INFORMATION
  Report Type: 
  Country: None (occurrence: None)
  Receive Date: 20040818
  Receipt Date: 20040804
  Transmission Date: 20050211
  Serious: Yes (Hospitalization)
  Sender: FDA-Public Use
  Company Number: 2004226869CH

PATIENT
  Sex: Female
  Weight: 60 kg

DRUGS (2)
  1. XALATAN [Suspect]
     Indication: GLAUCOMA
     Dosage: 1 GTT, QD, OPHTHALMIC
     Dates: start: 20040525, end: 20040601
  2. BRINERDINE (RESERPINE, CLOPAMIDE) [Concomitant]

REACTIONS (2)
  - VERTIGO [None]
  - VOMITING [None]
